FAERS Safety Report 9912548 (Version 5)
Quarter: 2014Q1

REPORT INFORMATION
  Report Type: Spontaneous
  Country: IT (occurrence: None)
  Receive Date: 20140212
  Receipt Date: 20140331
  Transmission Date: 20141002
  Serious: Yes (Hospitalization)
  Sender: FDA-Public Use
  Company Number: 2014SGN00074

PATIENT
  Age: 53 Year
  Sex: Female
  Weight: 84 kg

DRUGS (6)
  1. BRENTUXIMAB VEDOTIN [Suspect]
     Indication: MYCOSIS FUNGOIDES
     Dosage: 1.8MG/KG, Q21D, INTRAVENOUS
     Route: 042
     Dates: start: 20131125, end: 20140108
  2. ATENOLOL (ATENOLOL) [Concomitant]
  3. RAMIPRIL (RAMIPRIL) [Concomitant]
  4. ALLOPURINOL (ALLOPURINOL) [Concomitant]
  5. BACTRIM (SULFAMETHOXAZOLE, TRIMETHOPRIM) [Concomitant]
  6. PANTOPRAZOLE (PANTOPRAZOLE) [Concomitant]

REACTIONS (8)
  - Eczema [None]
  - Dermatitis allergic [None]
  - Toxic skin eruption [None]
  - Toxic skin eruption [None]
  - Erythema multiforme [None]
  - Stevens-Johnson syndrome [None]
  - Dermatitis exfoliative [None]
  - Toxic epidermal necrolysis [None]
